FAERS Safety Report 24869689 (Version 1)
Quarter: 2025Q1

REPORT INFORMATION
  Report Type: Spontaneous
  Country: US (occurrence: US)
  Receive Date: 20250121
  Receipt Date: 20250121
  Transmission Date: 20250409
  Serious: Yes (Other)
  Sender: ASTELLAS
  Company Number: US-ASTELLAS-2025-AER-001727

PATIENT
  Age: 43 Year
  Sex: Male

DRUGS (9)
  1. VYLOY [Suspect]
     Active Substance: ZOLBETUXIMAB-CLZB
     Indication: Gastrooesophageal cancer
     Dosage: 1400 MG EVERY TWO WEEK (LOADING DOSE) (FIRST DOSE)
     Route: 042
     Dates: start: 20241223
  2. VYLOY [Suspect]
     Active Substance: ZOLBETUXIMAB-CLZB
     Dosage: 700 MG EVERY TWO WEEK (SECOND DOSE)
     Route: 042
     Dates: start: 20250106
  3. ALOXI [Concomitant]
     Active Substance: PALONOSETRON HYDROCHLORIDE
     Indication: Premedication
     Route: 065
  4. FLUOROURACIL\LEUCOVORIN CALCIUM\OXALIPLATIN [Concomitant]
     Active Substance: FLUOROURACIL\LEUCOVORIN CALCIUM\OXALIPLATIN
     Indication: Gastrooesophageal cancer
     Dosage: EVERY TWO WEEKS, ADMINISTERED AFTER VYLOY
     Route: 065
     Dates: start: 20241209
  5. DEXAMETHASONE [Concomitant]
     Active Substance: DEXAMETHASONE
     Indication: Premedication
     Route: 065
  6. EMEND [Concomitant]
     Active Substance: APREPITANT
     Indication: Premedication
     Route: 065
  7. PROTONIX [Concomitant]
     Active Substance: PANTOPRAZOLE SODIUM
     Indication: Gastrooesophageal reflux disease
     Dosage: 40 MG TWICE DAILY
     Route: 065
     Dates: start: 20241105
  8. Polyethylene glycol/Glycolax [Concomitant]
     Indication: Constipation
     Dosage: ONCE DAILY
     Route: 065
     Dates: start: 20241115
  9. Lyrica liquid [Concomitant]
     Indication: Pain
     Dosage: 50 MG TWICE A DAY VIA G-TUBE
     Route: 050
     Dates: start: 20241205

REACTIONS (6)
  - Salivary hypersecretion [Recovered/Resolved]
  - Nausea [Recovered/Resolved]
  - Vomiting [Recovered/Resolved]
  - Nausea [Recovered/Resolved]
  - Vomiting [Recovered/Resolved]
  - Fatigue [Recovered/Resolved]

NARRATIVE: CASE EVENT DATE: 20241223
